FAERS Safety Report 23615885 (Version 4)
Quarter: 2024Q1

REPORT INFORMATION
  Report Type: Report from Study
  Country: EG (occurrence: EG)
  Receive Date: 20240311
  Receipt Date: 20240331
  Transmission Date: 20240409
  Serious: Yes (Disabling)
  Sender: FDA-Public Use
  Company Number: EG-002147023-NVSC2024EG050169

PATIENT
  Age: 48 Year
  Sex: Male

DRUGS (5)
  1. COSENTYX [Suspect]
     Active Substance: SECUKINUMAB
     Indication: Psoriatic arthropathy
     Dosage: 300 MG, QW (TWO PREFILLED SUBCUTANEOUS PENS OF COSENTYX 150 MG EVERY WEEK FOR 4 WEEKS AS LOADING DOS
     Route: 058
     Dates: start: 20240227
  2. COSENTYX [Suspect]
     Active Substance: SECUKINUMAB
     Indication: Rash
     Dosage: 300 MG, QMO (THEN TWO PREFILLED SUBCUTANEOUS PENS OF COSENTYX 150 MG EVERY MONTH FOR 3 MONTHS AS MAI
     Route: 058
  3. DOLIPRANE [Concomitant]
     Active Substance: ACETAMINOPHEN
     Indication: Analgesic therapy
     Dosage: UNK
     Route: 065
  4. PREDNISOLONE [Concomitant]
     Active Substance: PREDNISOLONE
     Indication: Cough
     Dosage: UNK
     Route: 065
  5. ZITHROKAN [Concomitant]
     Indication: Antibiotic therapy
     Dosage: UNK
     Route: 065

REACTIONS (10)
  - Nasopharyngitis [Recovering/Resolving]
  - Arthralgia [Recovering/Resolving]
  - Mobility decreased [Recovering/Resolving]
  - Hypersomnia [Unknown]
  - Pyrexia [Recovering/Resolving]
  - Decreased immune responsiveness [Recovering/Resolving]
  - Dizziness [Recovered/Resolved]
  - Hypotension [Unknown]
  - Off label use [Unknown]
  - Symptom recurrence [Unknown]

NARRATIVE: CASE EVENT DATE: 20240227
